FAERS Safety Report 11390308 (Version 1)
Quarter: 2015Q3

REPORT INFORMATION
  Report Type: Spontaneous
  Country: US (occurrence: None)
  Receive Date: 20150814
  Receipt Date: 20150814
  Transmission Date: 20151125
  Serious: Yes (Life-Threatening, Hospitalization)
  Sender: FDA-Public Use
  Company Number: None

PATIENT
  Age: 57 Year
  Sex: Male
  Weight: 103 kg

DRUGS (2)
  1. IBRUTINIB 140 MG PHARMACYCLICS/JANSSEN [Suspect]
     Active Substance: IBRUTINIB
     Indication: WALDENSTROM^S MACROGLOBULINAEMIA
     Dosage: 3 TABS
     Route: 048
     Dates: start: 20150706, end: 20150810
  2. ACYCLOVIR. [Concomitant]
     Active Substance: ACYCLOVIR

REACTIONS (12)
  - Pulse absent [None]
  - Dizziness [None]
  - Unresponsive to stimuli [None]
  - Acidosis [None]
  - Ventricular fibrillation [None]
  - Syncope [None]
  - Fall [None]
  - Ventricular tachycardia [None]
  - Ejection fraction decreased [None]
  - Palpitations [None]
  - Hypotension [None]
  - Cardiomyopathy [None]

NARRATIVE: CASE EVENT DATE: 20150810
